FAERS Safety Report 7938622-3 (Version None)
Quarter: 2011Q4

REPORT INFORMATION
  Report Type: 
  Country: None (occurrence: None)
  Receive Date: 20111123
  Receipt Date: 20111114
  Transmission Date: 20120403
  Serious: Yes (Life-Threatening, Hospitalization)
  Sender: FDA-Public Use
  Company Number: US-RB-034348-11

PATIENT
  Age: 50 Year
  Sex: Male

DRUGS (4)
  1. SUBOXONE [Suspect]
     Indication: DRUG DEPENDENCE
     Dosage: TAPERING DOSE
     Route: 060
     Dates: start: 20111001, end: 20111014
  2. SUBOXONE [Suspect]
     Route: 060
     Dates: start: 20110101, end: 20111001
  3. SUBOXONE [Suspect]
     Route: 060
     Dates: start: 20111001, end: 20111109
  4. HEROIN [Suspect]
     Indication: DRUG DEPENDENCE
     Dosage: UNKNOWN DOSING REGIMEN
     Route: 065
     Dates: start: 20111001, end: 20111109

REACTIONS (4)
  - SUBSTANCE ABUSE [None]
  - DRUG DEPENDENCE [None]
  - ACCIDENTAL OVERDOSE [None]
  - DEPRESSED LEVEL OF CONSCIOUSNESS [None]
